FAERS Safety Report 8959055 (Version 2)
Quarter: 2013Q1

REPORT INFORMATION
  Report Type: Spontaneous
  Country: US (occurrence: US)
  Receive Date: 20121212
  Receipt Date: 20130325
  Transmission Date: 20140127
  Serious: Yes (Other)
  Sender: FDA-Public Use
  Company Number: US-BAYER-2012-128638

PATIENT
  Age: 24 Year
  Sex: Female
  Weight: 78.46 kg

DRUGS (5)
  1. MIRENA [Suspect]
     Indication: CONTRACEPTION
     Dosage: 20 MCG/24HR, CONT
     Route: 015
     Dates: start: 20110506
  2. ALBUTEROL [Concomitant]
     Indication: WHEEZING
     Dosage: UNK UNK, PRN
     Dates: start: 20120916
  3. IPRATROPIUM [Concomitant]
     Indication: RESPIRATORY THERAPY
     Dosage: 2.5 ML, QID
  4. ALBUTEROL [Concomitant]
  5. SULFAMETHOXAZOLE W/TRIMETHOPRIM [Concomitant]

REACTIONS (7)
  - Device dislocation [None]
  - Device issue [None]
  - Amenorrhoea [None]
  - Abdominal pain lower [None]
  - Uterine haemorrhage [None]
  - Ovarian cyst [None]
  - Pelvic fluid collection [None]
